FAERS Safety Report 10251091 (Version 1)
Quarter: 2014Q2

REPORT INFORMATION
  Report Type: Spontaneous
  Country: US (occurrence: US)
  Receive Date: 20140620
  Receipt Date: 20140620
  Transmission Date: 20141212
  Serious: Yes (Hospitalization, Other)
  Sender: FDA-Public Use
  Company Number: US-B.I. PHARMACEUTICALS,INC./RIDGEFIELD-2014-BI-27401BP

PATIENT
  Sex: Male

DRUGS (1)
  1. PRADAXA [Suspect]
     Indication: ATRIAL FIBRILLATION
     Dosage: 300 MG
     Route: 048

REACTIONS (6)
  - Atrial flutter [Recovered/Resolved]
  - Appendix cancer [Recovered/Resolved]
  - Gastric cancer [Recovered/Resolved]
  - Cardiac pacemaker replacement [Recovered/Resolved]
  - Renal failure chronic [Not Recovered/Not Resolved]
  - Blood potassium increased [Not Recovered/Not Resolved]
